FAERS Safety Report 8852671 (Version 1)
Quarter: 2012Q4

REPORT INFORMATION
  Report Type: 
  Country: IL (occurrence: IL)
  Receive Date: 20121022
  Receipt Date: 20121022
  Transmission Date: 20130627
  Serious: Yes (Life-Threatening, Hospitalization, Disabling)
  Sender: FDA-Public Use
  Company Number: IL-B.I. PHARMACEUTICALS,INC./RIDGEFIELD-2012-AP-00783RI

PATIENT
  Age: 74 Year
  Sex: Male

DRUGS (8)
  1. PRADAXA [Suspect]
     Indication: PULMONARY EMBOLISM
     Dosage: 220 mg
     Route: 048
     Dates: start: 20120707, end: 20120903
  2. PRADAXA [Suspect]
     Indication: PERIPHERAL VASCULAR DISORDER
  3. OSMOLITE [Concomitant]
  4. ENALAPRIL [Concomitant]
  5. OMEPRADEX [Concomitant]
  6. TEVAPIRIN [Concomitant]
  7. GLUCOMIN 850 [Concomitant]
  8. VITAMIN B12 [Concomitant]

REACTIONS (4)
  - Shock haemorrhagic [Not Recovered/Not Resolved]
  - Pharyngeal haemorrhage [Not Recovered/Not Resolved]
  - Epistaxis [Not Recovered/Not Resolved]
  - Haematemesis [Not Recovered/Not Resolved]
